FAERS Safety Report 9540329 (Version 1)
Quarter: 2013Q3

REPORT INFORMATION
  Report Type: Spontaneous
  Country: US (occurrence: US)
  Receive Date: 20130920
  Receipt Date: 20130920
  Transmission Date: 20140515
  Serious: Yes (Other)
  Sender: FDA-Public Use
  Company Number: US-NAPPMUNDI-USA-2011-0066029

PATIENT
  Age: 14 Year
  Sex: Male

DRUGS (3)
  1. DILAUDID TABLET [Suspect]
     Indication: DRUG ABUSE
     Dosage: UNK UNK, UNK
  2. OXYCONTIN (NDA 22-272) [Suspect]
     Indication: DRUG ABUSE
  3. ATIVAN [Suspect]
     Indication: DRUG ABUSE
     Dosage: UNK UNK, UNK

REACTIONS (2)
  - Drug abuse [Recovering/Resolving]
  - Respiratory depression [Recovering/Resolving]
